FAERS Safety Report 8609597 (Version 5)
Quarter: 2013Q4

REPORT INFORMATION
  Report Type: Spontaneous
  Country: BR (occurrence: BR)
  Receive Date: 20120612
  Receipt Date: 20131106
  Transmission Date: 20140711
  Serious: Yes (Other)
  Sender: FDA-Public Use
  Company Number: BR-AMGEN-BRASP2012022422

PATIENT
  Age: 52 Year
  Sex: Female
  Weight: 90 kg

DRUGS (14)
  1. ENBREL [Suspect]
     Indication: RHEUMATOID ARTHRITIS
     Dosage: 50 MG, QWK
     Route: 058
     Dates: start: 20120226, end: 201212
  2. ENBREL [Suspect]
     Dosage: 25 MG, 2X/WEEK
     Route: 065
     Dates: start: 201212, end: 201302
  3. ENBREL [Suspect]
     Dosage: 50 MG, QWK
     Route: 058
     Dates: start: 201302
  4. PRELONE                            /00016201/ [Concomitant]
     Indication: PAIN
     Dosage: 5 MG, 2X/DAY
  5. PRELONE                            /00016201/ [Concomitant]
     Dosage: 7 MG, UNK
  6. METHOTREXATE [Concomitant]
     Indication: RHEUMATOID ARTHRITIS
     Dosage: 12 MG, WEEKLY
  7. LANSOPRAZOLE [Concomitant]
     Indication: GASTRIC DISORDER
     Dosage: 30 MG, UNK
  8. PANTOPRAZOLE [Concomitant]
     Indication: GASTRIC DISORDER
     Dosage: 20 MG, UNK
  9. NEXIUM                             /01479302/ [Concomitant]
     Indication: GASTRIC DISORDER
     Dosage: 20 MG, 1X/DAY
  10. TORAGESIC [Concomitant]
     Dosage: WHEN FEELING PAIN
  11. FLUOXETINE [Concomitant]
     Dosage: 20 MG, UNK
  12. REDUCLIM [Concomitant]
     Indication: HORMONE REPLACEMENT THERAPY
     Dosage: 1.25 MG, 1X/DAY
  13. DOLAMIN FLEX [Concomitant]
     Indication: MUSCLE RELAXANT THERAPY
     Dosage: UNK UNK, AS NECESSARY
  14. OMEPRAZOLE [Concomitant]
     Indication: OESOPHAGITIS
     Dosage: UNK
     Dates: start: 2009

REACTIONS (25)
  - Headache [Not Recovered/Not Resolved]
  - Abdominal pain upper [Not Recovered/Not Resolved]
  - Abdominal distension [Not Recovered/Not Resolved]
  - Abdominal discomfort [Not Recovered/Not Resolved]
  - Eye pain [Unknown]
  - Cough [Unknown]
  - Hyperhidrosis [Unknown]
  - Nausea [Unknown]
  - Pyrexia [Unknown]
  - Blood pressure increased [Not Recovered/Not Resolved]
  - Intervertebral disc protrusion [Not Recovered/Not Resolved]
  - Gait disturbance [Not Recovered/Not Resolved]
  - Dry mouth [Not Recovered/Not Resolved]
  - Lip injury [Not Recovered/Not Resolved]
  - Bronchospasm [Unknown]
  - Spinal pain [Unknown]
  - Fluid retention [Not Recovered/Not Resolved]
  - Weight increased [Unknown]
  - Injection site haematoma [Unknown]
  - Injection site hypersensitivity [Unknown]
  - Injection site pruritus [Unknown]
  - Chest pain [Unknown]
  - Injection site oedema [Unknown]
  - Injection site erythema [Unknown]
  - Dengue fever [Unknown]
